FAERS Safety Report 10960272 (Version 1)
Quarter: 2015Q1

REPORT INFORMATION
  Report Type: Spontaneous
  Country: US (occurrence: US)
  Receive Date: 20150327
  Receipt Date: 20150327
  Transmission Date: 20150721
  Serious: Yes (Hospitalization, Other)
  Sender: FDA-Public Use
  Company Number: GXBR2015US001042

PATIENT
  Age: 46 Year
  Sex: Female

DRUGS (5)
  1. LORAZEPAM ACTAVIS 2MG [Suspect]
     Active Substance: LORAZEPAM
     Dosage: 5GR MORNING/5GR EVENING
     Route: 065
  2. KEPPRA [Concomitant]
     Active Substance: LEVETIRACETAM
     Indication: EPILEPSY
     Dosage: UNK DF, UNK
     Route: 065
  3. LORAZEPAM ACTAVIS 2MG [Suspect]
     Active Substance: LORAZEPAM
     Indication: PRODUCT USED FOR UNKNOWN INDICATION
     Dosage: 5 GR, EVENING
     Route: 065
  4. LORAZEPAM ACTAVIS 2MG [Suspect]
     Active Substance: LORAZEPAM
     Dosage: 2.5GR, MORNING/2.5 GR EVENING
     Route: 065
  5. DEPAKENE [Concomitant]
     Active Substance: VALPROIC ACID
     Indication: EPILEPSY
     Dosage: UNK DF, UNK
     Route: 065

REACTIONS (9)
  - Seizure [Unknown]
  - Aphasia [Not Recovered/Not Resolved]
  - Insomnia [Recovered/Resolved]
  - Hypophagia [Not Recovered/Not Resolved]
  - Status epilepticus [Unknown]
  - Atonic seizures [Unknown]
  - Abasia [Recovering/Resolving]
  - Withdrawal syndrome [Unknown]
  - Screaming [Not Recovered/Not Resolved]

NARRATIVE: CASE EVENT DATE: 20140807
